FAERS Safety Report 20748674 (Version 5)
Quarter: 2022Q3

REPORT INFORMATION
  Report Type: Other
  Country: US (occurrence: US)
  Receive Date: 20220426
  Receipt Date: 20220816
  Transmission Date: 20221027
  Serious: Yes (Hospitalization)
  Sender: FDA-Public Use
  Company Number: US-DECIPHERA PHARMACEUTICALS LLC-2022US000302

PATIENT
  Sex: Male

DRUGS (5)
  1. QINLOCK [Suspect]
     Active Substance: RIPRETINIB
     Indication: Neoplasm malignant
     Dosage: 150 MILLIGRAM, QD
     Route: 048
     Dates: start: 20220331
  2. QINLOCK [Suspect]
     Active Substance: RIPRETINIB
     Dosage: 150 MILLIGRAM, QD
     Route: 048
  3. QINLOCK [Suspect]
     Active Substance: RIPRETINIB
     Dosage: 150 MILLIGRAM, BID
     Route: 048
     Dates: start: 20220610
  4. STIVARGA [Suspect]
     Active Substance: REGORAFENIB
     Indication: Hypertension
     Dosage: UNK, STOP DATE: 29-MAR-2022
  5. TAMSULOSIN [Concomitant]
     Active Substance: TAMSULOSIN

REACTIONS (15)
  - Neoplasm progression [Unknown]
  - Skin fissures [Unknown]
  - Hypertension [Unknown]
  - Reflux gastritis [Unknown]
  - Dizziness [Unknown]
  - Hypotension [Unknown]
  - Memory impairment [Unknown]
  - Fall [Unknown]
  - Confusional state [Unknown]
  - Asthenia [Unknown]
  - Abdominal pain upper [Unknown]
  - Constipation [Unknown]
  - Weight decreased [Unknown]
  - Extra dose administered [Unknown]
  - Product use in unapproved indication [Unknown]

NARRATIVE: CASE EVENT DATE: 20220101
